FAERS Safety Report 5603817-0 (Version None)
Quarter: 2008Q1

REPORT INFORMATION
  Report Type: 
  Country: None (occurrence: None)
  Receive Date: 20080123
  Receipt Date: 20080108
  Transmission Date: 20080703
  Serious: Yes (Other)
  Sender: FDA-Public Use
  Company Number: 230249J08USA

PATIENT
  Age: 54 Year
  Sex: Female
  Weight: 57.6068 kg

DRUGS (1)
  1. REBIF [Suspect]
     Indication: MULTIPLE SCLEROSIS
     Dosage: 44 MCG, 3 IN 1 WEEKS, SUBCUTANEOUS
     Route: 058
     Dates: start: 20020101

REACTIONS (3)
  - DISEASE PROGRESSION [None]
  - PAIN [None]
  - SCOLIOSIS [None]
